FAERS Safety Report 12476276 (Version 2)
Quarter: 2016Q2

REPORT INFORMATION
  Report Type: Other
  Country: GB (occurrence: GB)
  Receive Date: 20160617
  Receipt Date: 20160617
  Transmission Date: 20160815
  Serious: Yes (Hospitalization)
  Sender: FDA-Public Use
  Company Number: GB-CIPLA LTD.-2016GB06861

PATIENT

DRUGS (13)
  1. RAMIPRIL. [Suspect]
     Active Substance: RAMIPRIL
     Dosage: 1.25 MG, UNK
     Route: 065
     Dates: end: 20160513
  2. BENDROFLUMETHIAZIDE [Suspect]
     Active Substance: BENDROFLUMETHIAZIDE
     Dosage: 2.5 MG, UNK
     Route: 065
     Dates: end: 20160513
  3. ADCAL-D3 [Concomitant]
     Active Substance: CALCIUM CARBONATE\CHOLECALCIFEROL
     Dosage: I BD
     Route: 065
  4. SENNA [Concomitant]
     Active Substance: SENNA LEAF\SENNOSIDES\SENNOSIDES A AND B
     Dosage: UNK
     Route: 065
  5. ALLOPURINOL. [Concomitant]
     Active Substance: ALLOPURINOL
     Dosage: 300MG, OD
     Route: 065
  6. CISPLATIN. [Suspect]
     Active Substance: CISPLATIN
     Dosage: 50MG/50ML
     Route: 065
     Dates: start: 20160429
  7. CODEINE [Concomitant]
     Active Substance: CODEINE
     Dosage: UNK
     Route: 065
  8. SIMVASTATIN. [Concomitant]
     Active Substance: SIMVASTATIN
     Dosage: 40 MG ON
     Route: 065
  9. PARACETAMOL [Concomitant]
     Active Substance: ACETAMINOPHEN
     Dosage: UNK
     Route: 065
  10. CAPECITABINE. [Suspect]
     Active Substance: CAPECITABINE
     Dosage: 300 MG, UNK
     Route: 065
     Dates: start: 20160429
  11. LACTULOSE. [Concomitant]
     Active Substance: LACTULOSE
     Dosage: UNK
     Route: 065
  12. OMEPRAZOLE. [Concomitant]
     Active Substance: OMEPRAZOLE
     Dosage: 40 MG, OD
     Route: 065
  13. EPIRUBICIN [Suspect]
     Active Substance: EPIRUBICIN
     Dosage: 100MG/50ML
     Route: 065
     Dates: start: 20160429

REACTIONS (10)
  - Lethargy [Unknown]
  - Acute kidney injury [Recovered/Resolved]
  - Generalised erythema [Unknown]
  - Pleuritic pain [Unknown]
  - Pulmonary embolism [Unknown]
  - Hypokalaemia [Unknown]
  - Pyrexia [Unknown]
  - Hyponatraemia [Unknown]
  - Rash vesicular [Recovered/Resolved]
  - Neutropenic sepsis [Recovered/Resolved]

NARRATIVE: CASE EVENT DATE: 20160513
